FAERS Safety Report 22794504 (Version 4)
Quarter: 2023Q4

REPORT INFORMATION
  Report Type: Report from Study
  Country: US (occurrence: None)
  Receive Date: 20230807
  Receipt Date: 20231227
  Transmission Date: 20240110
  Serious: Yes (Death, Hospitalization, Other)
  Sender: FDA-Public Use
  Company Number: 2023A176660

PATIENT
  Age: 86 Year
  Sex: Female
  Weight: 58.2 kg

DRUGS (2)
  1. LYNPARZA [Suspect]
     Active Substance: OLAPARIB
     Indication: Salivary gland cancer
     Route: 048
     Dates: start: 20230216, end: 20230605
  2. LYNPARZA [Suspect]
     Active Substance: OLAPARIB
     Indication: Salivary gland cancer
     Route: 048
     Dates: start: 20230302, end: 20230605

REACTIONS (5)
  - Death [Fatal]
  - Dyspnoea [Fatal]
  - Cerebrovascular accident [Unknown]
  - Wheezing [Unknown]
  - Underdose [Unknown]

NARRATIVE: CASE EVENT DATE: 20230605
